FAERS Safety Report 17075284 (Version 1)
Quarter: 2019Q4

REPORT INFORMATION
  Report Type: Spontaneous
  Country: CN (occurrence: CN)
  Receive Date: 20191126
  Receipt Date: 20191126
  Transmission Date: 20200122
  Serious: Yes (Other)
  Sender: FDA-Public Use
  Company Number: CN-PFIZER INC-2019507729

PATIENT
  Age: 41 Year
  Sex: Female
  Weight: 58.3 kg

DRUGS (1)
  1. PACLITAXEL. [Suspect]
     Active Substance: PACLITAXEL
     Indication: OVARIAN NEOPLASM
     Dosage: 30 MG, 1X/DAY
     Route: 041
     Dates: start: 20191024, end: 20191024

REACTIONS (4)
  - Flushing [Recovered/Resolved]
  - Hypoaesthesia oral [Recovering/Resolving]
  - Dyspnoea [Recovering/Resolving]
  - Pruritus [Recovering/Resolving]

NARRATIVE: CASE EVENT DATE: 20191024
